FAERS Safety Report 14435008 (Version 2)
Quarter: 2018Q2

REPORT INFORMATION
  Report Type: Spontaneous
  Country: IT (occurrence: IT)
  Receive Date: 20180125
  Receipt Date: 20180416
  Transmission Date: 20180711
  Serious: Yes (Other)
  Sender: FDA-Public Use
  Company Number: IT-ROCHE-2061113

PATIENT
  Age: 64 Year
  Sex: Female

DRUGS (5)
  1. RANITIDINE HYDROCHLORIDE. [Concomitant]
     Active Substance: RANITIDINE HYDROCHLORIDE
     Indication: PROPHYLAXIS AGAINST GASTROINTESTINAL ULCER
     Dosage: MOST RECENT DOSE ADMININTERED ON 20/DEC/2017
     Route: 042
     Dates: start: 20171220
  2. DEXAMETHASONE. [Concomitant]
     Active Substance: DEXAMETHASONE
     Indication: ANAPHYLAXIS PROPHYLAXIS
     Dosage: MOST RECENT DOSE ADMININTERED ON 20/DEC/2017
     Route: 042
     Dates: start: 20171220
  3. METOCLOPRAMIDE HYDROCHLORIDE MONOHYDRATE [Concomitant]
     Indication: PROPHYLAXIS OF NAUSEA AND VOMITING
     Route: 042
  4. DIPHENHYDRAMINE. [Concomitant]
     Active Substance: DIPHENHYDRAMINE
     Indication: ANAPHYLAXIS PROPHYLAXIS
     Dosage: MOST RECENT DOSE ADMININTERED ON 20/DEC/2017
     Route: 042
     Dates: start: 20171220
  5. HERCEPTIN [Suspect]
     Active Substance: TRASTUZUMAB
     Indication: MALIGNANT NEOPLASM OF LACRIMAL GLAND
     Dosage: MOST RECENT DOSE ADMININTERED ON 20/DEC/2017
     Route: 042
     Dates: start: 20171220

REACTIONS (2)
  - Atrial fibrillation [Recovering/Resolving]
  - Tachycardia [Recovering/Resolving]

NARRATIVE: CASE EVENT DATE: 20171220
